FAERS Safety Report 7364729-8 (Version None)
Quarter: 2011Q1

REPORT INFORMATION
  Report Type: 
  Country: None (occurrence: None)
  Receive Date: 20110321
  Receipt Date: 20110314
  Transmission Date: 20110831
  Serious: Yes (Death, Other)
  Sender: FDA-Public Use
  Company Number: PHHY2011JP21859

PATIENT
  Age: 72 Year
  Sex: Male

DRUGS (2)
  1. CYCLOSPORINE [Suspect]
     Dosage: 200 MG/DAY
     Dates: start: 20090116
  2. METHYLPREDNISOLONE [Suspect]
     Dosage: 1 G/DAY
     Dates: start: 20090115, end: 20090117

REACTIONS (3)
  - GENERAL PHYSICAL HEALTH DETERIORATION [None]
  - DEATH [None]
  - RESPIRATORY DISORDER [None]
